FAERS Safety Report 9591740 (Version 2)
Quarter: 2013Q4

REPORT INFORMATION
  Report Type: Spontaneous
  Country: US (occurrence: US)
  Receive Date: 20131004
  Receipt Date: 20131004
  Transmission Date: 20140711
  Serious: No
  Sender: FDA-Public Use
  Company Number: US-AMGEN-USASP2012075504

PATIENT
  Age: 58 Year
  Sex: Female
  Weight: 84.81 kg

DRUGS (9)
  1. ENBREL [Suspect]
     Indication: RHEUMATOID ARTHRITIS
     Dosage: 25 MG, 2 TIMES/WK
     Route: 058
  2. BENADRYL                           /00000402/ [Concomitant]
     Dosage: 25 MG, UNK
  3. SYNTHROID [Concomitant]
     Dosage: 50 MUG, UNK
  4. ARAVA [Concomitant]
     Dosage: 20 MG, UNK
  5. GLIPIZIDE [Concomitant]
     Dosage: 5 MG, UNK
  6. NEXIUM                             /01479302/ [Concomitant]
     Dosage: 20 MG, UNK
  7. ZANTAC [Concomitant]
     Dosage: 75 UNK, UNK
  8. MOBIC [Concomitant]
     Dosage: 7.5 MG, UNK
  9. HYOSCYAMINE [Concomitant]
     Dosage: 0.375 SR

REACTIONS (12)
  - Abdominal discomfort [Not Recovered/Not Resolved]
  - Influenza like illness [Unknown]
  - Chills [Not Recovered/Not Resolved]
  - Fatigue [Not Recovered/Not Resolved]
  - Pain [Not Recovered/Not Resolved]
  - Pollakiuria [Not Recovered/Not Resolved]
  - Diarrhoea [Unknown]
  - Joint swelling [Not Recovered/Not Resolved]
  - Local swelling [Not Recovered/Not Resolved]
  - Abdominal pain [Not Recovered/Not Resolved]
  - Toothache [Unknown]
  - Vulvovaginal mycotic infection [Not Recovered/Not Resolved]
